FAERS Safety Report 18119305 (Version 1)
Quarter: 2020Q3

REPORT INFORMATION
  Report Type: Spontaneous
  Country: ES (occurrence: ES)
  Receive Date: 20200806
  Receipt Date: 20200806
  Transmission Date: 20201103
  Serious: Yes (Other)
  Sender: FDA-Public Use
  Company Number: ES-MACLEODS PHARMA UK LTD-MAC2020027519

PATIENT

DRUGS (2)
  1. OLMESARTAN [Suspect]
     Active Substance: OLMESARTAN
     Indication: HYPERTENSION
     Dosage: 10 MILLIGRAM, QD
     Route: 065
     Dates: end: 2017
  2. OLMESARTAN [Suspect]
     Active Substance: OLMESARTAN
     Dosage: UNK, DURING PRIOR 6 MONTHS
     Route: 065
     Dates: end: 2018

REACTIONS (1)
  - Autoimmune hepatitis [Recovered/Resolved]
